FAERS Safety Report 18560341 (Version 1)
Quarter: 2020Q4

REPORT INFORMATION
  Report Type: Spontaneous
  Country: AU (occurrence: AU)
  Receive Date: 20201130
  Receipt Date: 20201130
  Transmission Date: 20210114
  Serious: Yes (Other)
  Sender: FDA-Public Use
  Company Number: AU-GUERBET-AU-20200243

PATIENT
  Age: 16 Year
  Sex: Female
  Weight: 72 kg

DRUGS (1)
  1. OPTIRAY [Suspect]
     Active Substance: IOVERSOL
     Indication: UROGRAM
     Route: 042
     Dates: start: 20201113, end: 20201113

REACTIONS (3)
  - Dyspnoea [Recovered/Resolved]
  - Sneezing [Recovered/Resolved]
  - Pharyngeal swelling [Recovered/Resolved]

NARRATIVE: CASE EVENT DATE: 20201113
